FAERS Safety Report 20900143 (Version 1)
Quarter: 2022Q2

REPORT INFORMATION
  Report Type: Spontaneous
  Country: US (occurrence: None)
  Receive Date: 20220531
  Receipt Date: 20220531
  Transmission Date: 20220721
  Serious: Yes (Hospitalization)
  Sender: FDA-Public Use
  Company Number: None

PATIENT
  Age: 59 Year
  Sex: Female

DRUGS (1)
  1. IBRANCE [Suspect]
     Active Substance: PALBOCICLIB
     Indication: Breast cancer
     Dosage: 125MG DAILY ORAL?
     Route: 048
     Dates: start: 20220330

REACTIONS (4)
  - Cholelithiasis [None]
  - Infection [None]
  - Neutropenia [None]
  - Interstitial lung disease [None]

NARRATIVE: CASE EVENT DATE: 20220427
